FAERS Safety Report 4553388-5 (Version None)
Quarter: 2005Q1

REPORT INFORMATION
  Report Type: 
  Country: None (occurrence: None)
  Receive Date: 20050112
  Receipt Date: 20050104
  Transmission Date: 20050727
  Serious: Yes (Hospitalization)
  Sender: FDA-Public Use
  Company Number: 2005005296

PATIENT
  Sex: Female

DRUGS (6)
  1. FRAGMIN [Suspect]
     Indication: ILL-DEFINED DISORDER
     Dosage: SUBCUTANEOUS
     Route: 058
     Dates: start: 20040526, end: 20040529
  2. PARACETAMOL (PARACETAMOL) (PARACETAMOL) [Suspect]
     Indication: CRUSHING INJURY OF TRUNK
     Dosage: 2 GRAM (1 GRAM, BID INTERVAL: DAILY), ORAL
     Route: 048
     Dates: start: 20040526, end: 20040529
  3. ROFECOXIB [Suspect]
     Indication: CRUSHING INJURY OF TRUNK
     Dosage: 50 MG (25 MG, BID: INTERVAL: DAILY), ORAL
     Route: 048
     Dates: start: 20040526, end: 20040529
  4. DIAZEPAM [Concomitant]
  5. THIAMINE HCL [Concomitant]
  6. HALOPERIDOL [Concomitant]

REACTIONS (4)
  - BLOOD GLUCOSE ABNORMAL [None]
  - HEPATOCELLULAR DAMAGE [None]
  - HEPATOTOXICITY [None]
  - THROMBOCYTOPENIA [None]
